FAERS Safety Report 16200672 (Version 3)
Quarter: 2019Q2

REPORT INFORMATION
  Report Type: Report from Study
  Country: US (occurrence: US)
  Receive Date: 20190416
  Receipt Date: 20190625
  Transmission Date: 20190711
  Serious: Yes (Other)
  Sender: FDA-Public Use
  Company Number: US-BRISTOL-MYERS SQUIBB COMPANY-BMS-2019-033815

PATIENT
  Sex: Female

DRUGS (2)
  1. ABATACEPT [Suspect]
     Active Substance: ABATACEPT
     Indication: PRODUCT USED FOR UNKNOWN INDICATION
     Dosage: UNK
     Route: 065
     Dates: start: 2016
  2. HUMIRA [Suspect]
     Active Substance: ADALIMUMAB
     Indication: RHEUMATOID ARTHRITIS
     Dosage: 40 MILLIGRAM
     Route: 058
     Dates: start: 2009, end: 2016

REACTIONS (9)
  - Mobility decreased [Recovered/Resolved]
  - Sinusitis [Recovered/Resolved]
  - Diabetes mellitus [Not Recovered/Not Resolved]
  - Bursitis [Recovered/Resolved]
  - Injection site pain [Recovered/Resolved]
  - Tendonitis [Recovered/Resolved]
  - Injection site abscess [Recovered/Resolved]
  - Musculoskeletal pain [Recovered/Resolved]
  - Contraindicated product administered [Unknown]
